FAERS Safety Report 26160044 (Version 1)
Quarter: 2025Q4

REPORT INFORMATION
  Report Type: Spontaneous
  Country: VE (occurrence: VE)
  Receive Date: 20251216
  Receipt Date: 20251216
  Transmission Date: 20260119
  Serious: Yes (Death)
  Sender: ROCHE
  Company Number: VE-ROCHE-10000457397

PATIENT
  Age: 76 Year
  Sex: Male

DRUGS (2)
  1. COLUMVI [Suspect]
     Active Substance: GLOFITAMAB-GXBM
     Indication: Diffuse large B-cell lymphoma
  2. OBINUTUZUMAB [Suspect]
     Active Substance: OBINUTUZUMAB
     Indication: Diffuse large B-cell lymphoma

REACTIONS (3)
  - Epistaxis [Fatal]
  - Faeces discoloured [Fatal]
  - Haemoglobin decreased [Unknown]
